FAERS Safety Report 6336147-2 (Version None)
Quarter: 2009Q3

REPORT INFORMATION
  Report Type: 
  Country: None (occurrence: None)
  Receive Date: 20090828
  Receipt Date: 20090818
  Transmission Date: 20100115
  Serious: Yes (Hospitalization)
  Sender: FDA-Public Use
  Company Number: ADR14042009

PATIENT
  Age: 65 Year
  Sex: Male

DRUGS (15)
  1. CITALOPRAM HYDROBROMIDE [Suspect]
     Dosage: ORAL
     Route: 048
  2. METHYLENE BLUE [Concomitant]
  3. ALFACALCIDOL [Concomitant]
  4. ALUMINUM HYDROXIDE GEL [Concomitant]
  5. ATORVASTATIN [Concomitant]
  6. CLOPIDOGREL [Concomitant]
  7. FENTANYL [Concomitant]
  8. INSULIN [Concomitant]
  9. MORPHINE [Concomitant]
  10. OMEPRAZOLE [Concomitant]
  11. PROPOFOL [Concomitant]
  12. QUININE SULPHATE [Concomitant]
  13. REMIFENTANIL [Concomitant]
  14. SEVOFLURANE [Concomitant]
  15. SILDENAFIL CITRATE [Concomitant]

REACTIONS (4)
  - BUNDLE BRANCH BLOCK [None]
  - DRUG INTERACTION [None]
  - HAEMODIALYSIS [None]
  - SEROTONIN SYNDROME [None]
